FAERS Safety Report 25433092 (Version 2)
Quarter: 2025Q2

REPORT INFORMATION
  Report Type: Spontaneous
  Country: US (occurrence: None)
  Receive Date: 20250613
  Receipt Date: 20250613
  Transmission Date: 20250716
  Serious: No
  Sender: MDD OPERATIONS
  Company Number: US-MDD US Operations-MDD202409-003417

PATIENT
  Age: 77 Year
  Sex: Male

DRUGS (11)
  1. APOKYN [Suspect]
     Active Substance: APOMORPHINE HYDROCHLORIDE
     Indication: Parkinson^s disease
     Route: 058
     Dates: start: 20240819
  2. APOKYN [Suspect]
     Active Substance: APOMORPHINE HYDROCHLORIDE
     Dates: start: 20240827
  3. VITAMIN D3 [Concomitant]
     Active Substance: CHOLECALCIFEROL
  4. VITAMIN C [Concomitant]
     Active Substance: ASCORBIC ACID
  5. ZINC [Concomitant]
     Active Substance: ZINC
  6. ASCORBIC ACID\VITAMIN B COMPLEX [Concomitant]
     Active Substance: ASCORBIC ACID\VITAMIN B COMPLEX
  7. MELATONIN [Concomitant]
     Active Substance: MELATONIN
  8. DONEPEZIL HYDROCHLORIDE [Concomitant]
     Active Substance: DONEPEZIL HYDROCHLORIDE
  9. CELEXA [Concomitant]
     Active Substance: CITALOPRAM HYDROBROMIDE
  10. TEMAZEPAM [Concomitant]
     Active Substance: TEMAZEPAM
  11. RYTARY [Concomitant]
     Active Substance: CARBIDOPA\LEVODOPA

REACTIONS (7)
  - Cold sweat [Unknown]
  - Malaise [Unknown]
  - Dizziness [Unknown]
  - Somnolence [Unknown]
  - Rhinorrhoea [Unknown]
  - Blood pressure decreased [Unknown]
  - Adverse event [Unknown]

NARRATIVE: CASE EVENT DATE: 20240910
